FAERS Safety Report 16682934 (Version 1)
Quarter: 2019Q3

REPORT INFORMATION
  Report Type: Spontaneous
  Country: US (occurrence: US)
  Receive Date: 20190807
  Receipt Date: 20190807
  Transmission Date: 20191004
  Serious: Yes (Hospitalization)
  Sender: FDA-Public Use
  Company Number: None

PATIENT
  Age: 64 Year
  Sex: Female

DRUGS (11)
  1. PREDNISONE. [Concomitant]
     Active Substance: PREDNISONE
  2. CITRACAL [Concomitant]
     Active Substance: CALCIUM CITRATE
  3. TACROLIMUS. [Suspect]
     Active Substance: TACROLIMUS
     Indication: FUNGAL SKIN INFECTION
     Route: 048
  4. NYSTATIN. [Concomitant]
     Active Substance: NYSTATIN
  5. MULTI-VITAMIN [Concomitant]
     Active Substance: .ALPHA.-TOCOPHEROL ACETATE, DL-\ASCORBIC ACID\CYANOCOBALAMIN\FLUORIDE ION\FOLIC ACID\NIACIN\PYRIDOXINE\RIBOFLAVIN\THIAMINE\VITAMIN A\VITAMIN D
  6. IMODIUM [Concomitant]
     Active Substance: LOPERAMIDE HYDROCHLORIDE
  7. ZOVIRAX [Concomitant]
     Active Substance: ACYCLOVIR
  8. VITAMIN D [Concomitant]
     Active Substance: VITAMIN D NOS
  9. TYLENOL [Concomitant]
     Active Substance: ACETAMINOPHEN
  10. KLONOPIN [Concomitant]
     Active Substance: CLONAZEPAM
  11. URSODIOL. [Concomitant]
     Active Substance: URSODIOL

REACTIONS (1)
  - Pancreatitis [None]

NARRATIVE: CASE EVENT DATE: 20190806
